FAERS Safety Report 22047028 (Version 4)
Quarter: 2023Q1

REPORT INFORMATION
  Report Type: Spontaneous
  Country: BE (occurrence: BE)
  Receive Date: 20230301
  Receipt Date: 20230321
  Transmission Date: 20230417
  Serious: Yes (Hospitalization)
  Sender: FDA-Public Use
  Company Number: BE-Accord-299340

PATIENT
  Age: 71 Year
  Sex: Male
  Weight: 90.2 kg

DRUGS (29)
  1. GEMCITABINE [Suspect]
     Active Substance: GEMCITABINE
     Indication: Product used for unknown indication
     Dosage: 1000 MILLIGRAM/SQ. METER (2 WEEK, 1Q2W)
     Route: 065
     Dates: start: 20221230
  2. GEMCITABINE [Suspect]
     Active Substance: GEMCITABINE
     Dosage: 1000 MILLIGRAM/SQ. METER (2 WEEK, 1Q2W)
     Route: 065
     Dates: start: 20230113
  3. OXALIPLATIN [Suspect]
     Active Substance: OXALIPLATIN
     Indication: Product used for unknown indication
     Dosage: 100 MILLIGRAM/SQ. METER (1Q2W)
     Route: 065
     Dates: start: 20221230
  4. OXALIPLATIN [Suspect]
     Active Substance: OXALIPLATIN
     Dosage: 100 MILLIGRAM/SQ. METER (1Q2W)
     Route: 065
     Dates: start: 20230113
  5. EPCORITAMAB [Suspect]
     Active Substance: EPCORITAMAB
     Indication: Product used for unknown indication
     Dosage: 0.16 MILLIGRAM (PRIMING DOSE; SINGLE)
     Route: 058
     Dates: start: 20221230, end: 20221230
  6. EPCORITAMAB [Suspect]
     Active Substance: EPCORITAMAB
     Dosage: 0.8 MILLIGRAM (INTERMEDIATE DOSE; SINGLE)
     Route: 058
     Dates: start: 20230106, end: 20230106
  7. EPCORITAMAB [Suspect]
     Active Substance: EPCORITAMAB
     Dosage: 48 MILLIGRAM (FULL DOSE; WEEKLY)
     Route: 058
     Dates: start: 20230113, end: 20230113
  8. EPCORITAMAB [Suspect]
     Active Substance: EPCORITAMAB
     Dosage: 48 MILLIGRAM (FULL DOSE; WEEKLY)
     Route: 058
     Dates: start: 20230120, end: 20230120
  9. ACYCLOVIR [Concomitant]
     Active Substance: ACYCLOVIR
     Indication: Product used for unknown indication
     Dosage: UNK
     Route: 065
     Dates: start: 20221230
  10. ALIZAPRIDE [Concomitant]
     Active Substance: ALIZAPRIDE
     Indication: Product used for unknown indication
     Dosage: UNK
     Route: 065
     Dates: start: 20221230
  11. SULFAMETHOXAZOLE\TRIMETHOPRIM [Concomitant]
     Active Substance: SULFAMETHOXAZOLE\TRIMETHOPRIM
     Indication: Product used for unknown indication
     Dosage: UNK
     Route: 065
     Dates: start: 20221230
  12. GAVISCON [Concomitant]
     Active Substance: ALUMINUM HYDROXIDE\MAGNESIUM CARBONATE
     Indication: Product used for unknown indication
     Dosage: UNK
     Route: 065
     Dates: start: 20230106
  13. LEVOCETIRIZINE [Concomitant]
     Active Substance: LEVOCETIRIZINE
     Indication: Product used for unknown indication
     Dosage: 5 MILLIGRAM
     Route: 048
     Dates: start: 20230113
  14. LEVOCETIRIZINE [Concomitant]
     Active Substance: LEVOCETIRIZINE
     Dosage: 5 MILLIGRAM
     Route: 048
     Dates: start: 20230106, end: 20230106
  15. LEVOCETIRIZINE [Concomitant]
     Active Substance: LEVOCETIRIZINE
     Dosage: 5 MILLIGRAM
     Route: 048
     Dates: start: 20221230, end: 20221230
  16. METHYLPREDNISOLONE [Concomitant]
     Active Substance: METHYLPREDNISOLONE
     Indication: Product used for unknown indication
     Dosage: 80 MILLIGRAM
     Route: 065
     Dates: start: 20230114
  17. METHYLPREDNISOLONE [Concomitant]
     Active Substance: METHYLPREDNISOLONE
     Dosage: 80 MILLIGRAM
     Route: 065
     Dates: start: 20221231, end: 20230102
  18. METHYLPREDNISOLONE [Concomitant]
     Active Substance: METHYLPREDNISOLONE
     Dosage: 80 MILLIGRAM
     Route: 065
     Dates: start: 20230113, end: 20230113
  19. METHYLPREDNISOLONE [Concomitant]
     Active Substance: METHYLPREDNISOLONE
     Dosage: 80 MILLIGRAM
     Route: 065
     Dates: start: 20221230, end: 20221230
  20. PALONOSETRON [Concomitant]
     Active Substance: PALONOSETRON
     Indication: Product used for unknown indication
     Dosage: UNK
     Route: 065
     Dates: start: 20221230
  21. Pantomed [Concomitant]
     Indication: Product used for unknown indication
     Dosage: UNK
     Route: 065
     Dates: start: 20230106
  22. PASSIFLORA INCARNATA [Concomitant]
     Active Substance: HERBALS\HOMEOPATHICS\PASSIFLORA INCARNATA FLOWERING TOP
     Indication: Product used for unknown indication
     Dosage: UNK
     Route: 065
     Dates: start: 20230106
  23. ACETAMINOPHEN [Concomitant]
     Active Substance: ACETAMINOPHEN
     Indication: Product used for unknown indication
     Dosage: 1000 MILLIGRAM
     Route: 048
     Dates: start: 20230113
  24. ACETAMINOPHEN [Concomitant]
     Active Substance: ACETAMINOPHEN
     Dosage: 1000 MILLIGRAM
     Route: 048
     Dates: start: 20221230, end: 20221230
  25. ACETAMINOPHEN [Concomitant]
     Active Substance: ACETAMINOPHEN
     Dosage: 1000 MILLIGRAM
     Route: 048
     Dates: start: 20230106, end: 20230106
  26. VITAMIN B [Concomitant]
     Active Substance: VITAMIN B
     Indication: Product used for unknown indication
     Dosage: UNK
     Route: 065
     Dates: start: 20221219
  27. VITAMIN D NOS [Concomitant]
     Active Substance: VITAMIN D NOS
     Indication: Product used for unknown indication
     Dosage: UNK
     Route: 065
     Dates: start: 20221219
  28. MAGNESIUM [Concomitant]
     Active Substance: MAGNESIUM
     Indication: Product used for unknown indication
     Dosage: UNK
     Route: 065
     Dates: start: 20221219
  29. LIPEGFILGRASTIM [Concomitant]
     Active Substance: LIPEGFILGRASTIM
     Indication: Product used for unknown indication
     Dosage: UNK
     Route: 065
     Dates: start: 20230102

REACTIONS (1)
  - Pyrexia [Recovered/Resolved]

NARRATIVE: CASE EVENT DATE: 20230118
